FAERS Safety Report 11542670 (Version 1)
Quarter: 2015Q3

REPORT INFORMATION
  Report Type: Spontaneous
  Country: US (occurrence: US)
  Receive Date: 20150923
  Receipt Date: 20150923
  Transmission Date: 20151125
  Serious: Yes (Other)
  Sender: FDA-Public Use
  Company Number: US-BAYER-2015-422893

PATIENT
  Sex: Female
  Weight: 61.22 kg

DRUGS (12)
  1. KCL [Concomitant]
     Active Substance: POTASSIUM CHLORIDE
     Dosage: 20 MEQ, QD
  2. ADVIL [Concomitant]
     Active Substance: IBUPROFEN
     Indication: ARTHRITIS
     Dosage: 2 DF, PRN
  3. SPIRIVA [Concomitant]
     Active Substance: TIOTROPIUM BROMIDE MONOHYDRATE
     Indication: CHRONIC OBSTRUCTIVE PULMONARY DISEASE
     Dosage: UNK, QD
  4. BAYER LOW DOSE [Suspect]
     Active Substance: ASPIRIN
     Indication: TRANSIENT ISCHAEMIC ATTACK
  5. IRON [Concomitant]
     Active Substance: IRON
     Indication: ANAEMIA
  6. LASIX [Concomitant]
     Active Substance: FUROSEMIDE
     Indication: CARDIAC FAILURE CONGESTIVE
     Dosage: 20 MG, QD
  7. BAYER LOW DOSE [Suspect]
     Active Substance: ASPIRIN
     Indication: ATRIAL FIBRILLATION
     Dosage: UNK, QD
  8. PROTONIX [Concomitant]
     Active Substance: PANTOPRAZOLE SODIUM
     Dosage: 40 MG, UNK
  9. METOPROLOL SUCCINATE. [Concomitant]
     Active Substance: METOPROLOL SUCCINATE
     Indication: BLOOD PRESSURE MANAGEMENT
     Dosage: 50 MG, BID
  10. CELEBREX [Concomitant]
     Active Substance: CELECOXIB
     Indication: ARTHRITIS
     Dosage: 200 MG, ONCE A DAY IN THE MORNING
  11. BAYER GENUINE ASPIRIN [Suspect]
     Active Substance: ASPIRIN
     Indication: ARTHRITIS
  12. VITAMIN B12 [Concomitant]
     Active Substance: CYANOCOBALAMIN

REACTIONS (3)
  - Product use issue [None]
  - Drug ineffective for unapproved indication [None]
  - Haemorrhage [None]
